FAERS Safety Report 11737938 (Version 1)
Quarter: 2015Q4

REPORT INFORMATION
  Report Type: Spontaneous
  Country: US (occurrence: US)
  Receive Date: 20151110
  Receipt Date: 20151110
  Transmission Date: 20160304
  Serious: No
  Sender: FDA-Public Use
  Company Number: US-ELI_LILLY_AND_COMPANY-US201207005442

PATIENT
  Age: 61 Year
  Sex: Female

DRUGS (2)
  1. NIASPAN [Concomitant]
     Active Substance: NIACIN
  2. FORTEO [Suspect]
     Active Substance: TERIPARATIDE
     Indication: OSTEOPOROSIS
     Dosage: 20 UG, QD
     Dates: start: 20120605

REACTIONS (6)
  - Miliaria [Recovered/Resolved]
  - Pigmentation disorder [Recovered/Resolved]
  - Injection site bruising [Unknown]
  - Rash [Recovered/Resolved]
  - Rash [Recovered/Resolved]
  - Weight increased [Unknown]

NARRATIVE: CASE EVENT DATE: 20120606
